FAERS Safety Report 8756709 (Version 2)
Quarter: 2013Q1

REPORT INFORMATION
  Report Type: Spontaneous
  Country: BR (occurrence: BR)
  Receive Date: 20120828
  Receipt Date: 20130315
  Transmission Date: 20140127
  Serious: Yes (Other)
  Sender: FDA-Public Use
  Company Number: PHHY2012BR073793

PATIENT
  Sex: Female

DRUGS (6)
  1. DIOVAN AMLO FIX [Suspect]
     Indication: BLOOD PRESSURE
     Dosage: 1 DF, DAILY
  2. ANCORON [Concomitant]
     Indication: ARRHYTHMIA
     Dosage: 2 DF(200MG), DAILY
     Route: 048
     Dates: start: 201204
  3. MOTILIUM ^BYK GULDEN^ [Concomitant]
     Dosage: 2 DF, DAILY
     Route: 048
     Dates: start: 201204
  4. LUFTAL [Concomitant]
     Dosage: 2 DF(75MG), DAILY
     Route: 048
     Dates: start: 201204
  5. OMEPRAZOLE [Concomitant]
     Indication: ABDOMINAL DISCOMFORT
     Dosage: 1 DF(20MG), DAILY IN FASTING
     Route: 048
     Dates: start: 201204
  6. ACETYLSALICYLIC ACID (SOMALGIN CARDIO) [Concomitant]
     Indication: INFARCTION
     Dosage: 1 DF(100MG), DAILY AFTER LUNCH
     Route: 048
     Dates: start: 201204

REACTIONS (3)
  - Thrombosis [Unknown]
  - Blood pressure decreased [Unknown]
  - Blood pressure increased [Recovering/Resolving]
